FAERS Safety Report 5356191-1 (Version None)
Quarter: 2007Q2

REPORT INFORMATION
  Report Type: 
  Country: None (occurrence: None)
  Receive Date: 20070613
  Receipt Date: 20070607
  Transmission Date: 20071010
  Serious: No
  Sender: FDA-Public Use
  Company Number: US-PFIZER INC-2002002588

PATIENT
  Sex: Female
  Weight: 53.5 kg

DRUGS (4)
  1. ATARAX [Suspect]
     Indication: HYPERSENSITIVITY
     Dosage: TEXT:UNKNOWN-FREQ:PRN
     Route: 048
  2. HYDROXYZINE HYDROCHLORIDE [Suspect]
     Indication: RASH
     Dosage: TEXT:UNKNOWN-FREQ:UNKNOWN
     Route: 065
  3. CEFALEXIN MONOHYDRATE [Concomitant]
  4. MOXIFLOXACIN HYDROCHLORIDE [Concomitant]

REACTIONS (1)
  - NO ADVERSE EFFECT [None]
